FAERS Safety Report 19724963 (Version 2)
Quarter: 2021Q3

REPORT INFORMATION
  Report Type: Spontaneous
  Country: AR (occurrence: AR)
  Receive Date: 20210820
  Receipt Date: 20210825
  Transmission Date: 20211014
  Serious: Yes (Other)
  Sender: FDA-Public Use
  Company Number: AR-AMGEN-ARGSP2021127872

PATIENT
  Age: 55 Year
  Sex: Female

DRUGS (1)
  1. ENBREL [Suspect]
     Active Substance: ETANERCEPT
     Indication: RHEUMATOID ARTHRITIS
     Dosage: 50 MG, WEEKLY
     Route: 065
     Dates: start: 20180205, end: 20210716

REACTIONS (4)
  - Intentional dose omission [Not Recovered/Not Resolved]
  - Peripheral swelling [Unknown]
  - Rheumatoid arthritis [Unknown]
  - Swelling [Unknown]

NARRATIVE: CASE EVENT DATE: 20210716
